FAERS Safety Report 16230742 (Version 4)
Quarter: 2022Q2

REPORT INFORMATION
  Report Type: Spontaneous
  Country: US (occurrence: None)
  Receive Date: 20190423
  Receipt Date: 20220621
  Transmission Date: 20220720
  Serious: Yes (Other)
  Sender: FDA-Public Use
  Company Number: 2019SE58725

PATIENT
  Age: 22544 Day
  Sex: Female
  Weight: 101.6 kg

DRUGS (29)
  1. NEXIUM [Suspect]
     Active Substance: ESOMEPRAZOLE MAGNESIUM
     Indication: Gastrooesophageal reflux disease
     Route: 048
     Dates: start: 199601, end: 201707
  2. NEXIUM [Suspect]
     Active Substance: ESOMEPRAZOLE MAGNESIUM
     Indication: Gastrooesophageal reflux disease
     Route: 048
     Dates: start: 20050630
  3. PREVACID [Suspect]
     Active Substance: LANSOPRAZOLE
     Indication: Gastrooesophageal reflux disease
     Route: 065
     Dates: start: 199601, end: 201707
  4. PREVACID [Suspect]
     Active Substance: LANSOPRAZOLE
     Indication: Gastrooesophageal reflux disease
     Route: 065
     Dates: start: 19960713, end: 20060225
  5. AMLODIPINE BESYLATE [Concomitant]
     Active Substance: AMLODIPINE BESYLATE
     Indication: Hypertension
     Dates: start: 20140131, end: 20141028
  6. AMOXICILLIN [Concomitant]
     Active Substance: AMOXICILLIN
     Indication: Infection
     Dates: start: 20170214, end: 20170316
  7. DIAZEPAM [Concomitant]
     Active Substance: DIAZEPAM
     Indication: Muscle spasms
     Dates: start: 20130903, end: 20170613
  8. SIMVASTATIN [Concomitant]
     Active Substance: SIMVASTATIN
     Indication: Blood cholesterol increased
     Dates: start: 20130804, end: 20170713
  9. BENICAR [Concomitant]
     Active Substance: OLMESARTAN MEDOXOMIL
     Indication: Blood cholesterol increased
     Dates: start: 20130804, end: 20170417
  10. SYNTHROID [Concomitant]
     Active Substance: LEVOTHYROXINE SODIUM
     Indication: Hypothyroidism
     Dates: start: 20140121, end: 20170714
  11. ESCIN/LEVOTHYROXINE [Concomitant]
     Indication: Hypothyroidism
     Dates: start: 20130923, end: 20131027
  12. PROAIR HFA [Concomitant]
     Active Substance: ALBUTEROL SULFATE
  13. PREDNISOLONE [Concomitant]
     Active Substance: PREDNISOLONE
  14. TERCONAZOLE [Concomitant]
     Active Substance: TERCONAZOLE
  15. KETOROLAC [Concomitant]
     Active Substance: KETOROLAC TROMETHAMINE
  16. FLUCONAZOLE [Concomitant]
     Active Substance: FLUCONAZOLE
  17. ACETAMINOPHEN [Concomitant]
     Active Substance: ACETAMINOPHEN
  18. AMMONIUM LACTATE [Concomitant]
     Active Substance: AMMONIUM LACTATE
  19. ZELNORM [Concomitant]
     Active Substance: TEGASEROD MALEATE
  20. ZYLET [Concomitant]
     Active Substance: LOTEPREDNOL ETABONATE\TOBRAMYCIN
  21. ROXICET [Concomitant]
     Active Substance: ACETAMINOPHEN\OXYCODONE HYDROCHLORIDE
  22. ALBUTEROL [Concomitant]
     Active Substance: ALBUTEROL
  23. TEKTURNA [Concomitant]
     Active Substance: ALISKIREN HEMIFUMARATE
  24. ZETIA [Concomitant]
     Active Substance: EZETIMIBE
  25. FUROSEMIDE [Concomitant]
     Active Substance: FUROSEMIDE
  26. WELCHOL [Concomitant]
     Active Substance: COLESEVELAM HYDROCHLORIDE
  27. SHINGRIX [Concomitant]
     Active Substance: RECOMBINANT VARICELLA ZOSTER VIRUS (VZV) GLYCOPROTEIN E
  28. LOPRESSOR [Concomitant]
     Active Substance: METOPROLOL TARTRATE
  29. AMITIZA [Concomitant]
     Active Substance: LUBIPROSTONE

REACTIONS (4)
  - Chronic kidney disease [Not Recovered/Not Resolved]
  - Renal failure [Unknown]
  - Nephrogenic anaemia [Unknown]
  - Gastrooesophageal reflux disease [Not Recovered/Not Resolved]

NARRATIVE: CASE EVENT DATE: 20080529
